FAERS Safety Report 14531892 (Version 10)
Quarter: 2020Q1

REPORT INFORMATION
  Report Type: Spontaneous
  Country: US (occurrence: US)
  Receive Date: 20180214
  Receipt Date: 20200103
  Transmission Date: 20200409
  Serious: Yes (Hospitalization, Other)
  Sender: FDA-Public Use
  Company Number: US-VIFOR (INTERNATIONAL) INC.-VIT-2018-01625

PATIENT
  Age: 83 Year
  Sex: Male
  Weight: 86.26 kg

DRUGS (12)
  1. VELTASSA [Suspect]
     Active Substance: PATIROMER
     Indication: HYPERKALAEMIA
     Route: 048
     Dates: start: 20171230
  2. ASPIRIN. [Concomitant]
     Active Substance: ASPIRIN
  3. CARVEDILOL. [Concomitant]
     Active Substance: CARVEDILOL
  4. CITALOPRAM HYDROBROMIDE. [Concomitant]
     Active Substance: CITALOPRAM HYDROBROMIDE
  5. FUROSEMIDE. [Concomitant]
     Active Substance: FUROSEMIDE
  6. VELTASSA [Suspect]
     Active Substance: PATIROMER
     Route: 048
     Dates: start: 2019
  7. CALCITRIOL. [Concomitant]
     Active Substance: CALCITRIOL
  8. DOK [Concomitant]
     Active Substance: DOCUSATE SODIUM
  9. ALLOPURINOL. [Concomitant]
     Active Substance: ALLOPURINOL
  10. VELTASSA [Suspect]
     Active Substance: PATIROMER
     Route: 048
     Dates: start: 20180130
  11. CALCIUM ASPARTATE [Concomitant]
     Active Substance: CALCIUM ASPARTATE
  12. DOXAZOSIN MESYLATE. [Concomitant]
     Active Substance: DOXAZOSIN MESYLATE

REACTIONS (10)
  - Product dose omission [Unknown]
  - Colon cancer [Recovered/Resolved]
  - Constipation [Recovered/Resolved]
  - Malaise [Unknown]
  - Inappropriate schedule of product administration [Not Recovered/Not Resolved]
  - Obstruction [Recovered/Resolved]
  - Decreased appetite [Not Recovered/Not Resolved]
  - Neoplasm malignant [Unknown]
  - Hospitalisation [Unknown]
  - Nephrectomy [Unknown]

NARRATIVE: CASE EVENT DATE: 2017
